FAERS Safety Report 8616244-9 (Version None)
Quarter: 2012Q3

REPORT INFORMATION
  Report Type: 
  Country: None (occurrence: None)
  Receive Date: 20120823
  Receipt Date: 20120813
  Transmission Date: 20120928
  Serious: Yes (Other)
  Sender: FDA-Public Use
  Company Number: US-ROCHE-1101143

PATIENT
  Sex: Female

DRUGS (2)
  1. FOSAMAX [Suspect]
     Indication: OSTEOPOROSIS PROPHYLAXIS
     Dates: start: 19980101, end: 20070201
  2. BONIVA [Suspect]
     Indication: OSTEOPOROSIS PROPHYLAXIS
     Dates: start: 20080301, end: 20110601

REACTIONS (4)
  - EMOTIONAL DISTRESS [None]
  - STRESS FRACTURE [None]
  - ANXIETY [None]
  - LOW TURNOVER OSTEOPATHY [None]
